FAERS Safety Report 5895172-6 (Version None)
Quarter: 2008Q3

REPORT INFORMATION
  Report Type: 
  Country: None (occurrence: None)
  Receive Date: 20080923
  Receipt Date: 20080923
  Transmission Date: 20090109
  Serious: Yes (Other)
  Sender: FDA-Public Use
  Company Number: None

PATIENT
  Sex: Female
  Weight: 77.1115 kg

DRUGS (3)
  1. SIMCOR [Suspect]
     Indication: BLOOD TRIGLYCERIDES INCREASED
     Dosage: 1 PILL DAILY PO
     Route: 048
     Dates: start: 20080916, end: 20080922
  2. SIMCOR [Suspect]
     Indication: HIGH DENSITY LIPOPROTEIN DECREASED
     Dosage: 1 PILL DAILY PO
     Route: 048
     Dates: start: 20080916, end: 20080922
  3. SIMCOR [Suspect]
     Indication: LOW DENSITY LIPOPROTEIN INCREASED
     Dosage: 1 PILL DAILY PO
     Route: 048
     Dates: start: 20080916, end: 20080922

REACTIONS (1)
  - DYSPNOEA EXERTIONAL [None]
